FAERS Safety Report 6527239-3 (Version None)
Quarter: 2010Q1

REPORT INFORMATION
  Report Type: 
  Country: None (occurrence: None)
  Receive Date: 20100104
  Receipt Date: 20100104
  Transmission Date: 20100710
  Serious: Yes (Hospitalization)
  Sender: FDA-Public Use
  Company Number: None

PATIENT
  Sex: Male
  Weight: 81.6475 kg

DRUGS (1)
  1. CIPRO [Suspect]
     Indication: DIARRHOEA
     Dosage: 250 MG 2XD PO
     Route: 048
     Dates: start: 20091217, end: 20091221

REACTIONS (2)
  - FALL [None]
  - TENDON RUPTURE [None]
